FAERS Safety Report 7075146-2 (Version None)
Quarter: 2010Q4

REPORT INFORMATION
  Report Type: 
  Country: None (occurrence: None)
  Receive Date: 20101029
  Receipt Date: 20100422
  Transmission Date: 20110411
  Serious: No
  Sender: FDA-Public Use
  Company Number: US-WYE-H14847910

PATIENT
  Age: 85 Year
  Sex: Female
  Weight: 69.01 kg

DRUGS (5)
  1. ALAVERT [Suspect]
     Indication: HYPERSENSITIVITY
     Route: 048
  2. VENTOLIN [Concomitant]
  3. GEMFIBROZIL [Concomitant]
  4. TRIAMTERENE AND HYDROCHLOROTHIAZIDE [Concomitant]
  5. ENALAPRIL MALEATE [Concomitant]

REACTIONS (1)
  - ALOPECIA [None]
